FAERS Safety Report 24786551 (Version 1)
Quarter: 2024Q4

REPORT INFORMATION
  Report Type: Spontaneous
  Country: ES (occurrence: ES)
  Receive Date: 20241230
  Receipt Date: 20241230
  Transmission Date: 20250115
  Serious: Yes (Other)
  Sender: REGENERON
  Company Number: ES-ROCHE-10000137854

PATIENT
  Age: 74 Year
  Sex: Male

DRUGS (7)
  1. EYLEA [Suspect]
     Active Substance: AFLIBERCEPT
     Indication: Age-related macular degeneration
     Dosage: UNK, ONCE; SOLUTION FOR INJECTION; 40 MG/NL
     Dates: start: 20240422, end: 20240422
  2. AVASTIN [Suspect]
     Active Substance: BEVACIZUMAB
     Indication: Age-related macular degeneration
     Dosage: UNK
     Route: 065
  3. VABYSMO [Suspect]
     Active Substance: FARICIMAB-SVOA
     Indication: Age-related macular degeneration
     Dosage: UNK
     Dates: start: 20240523
  4. VABYSMO [Suspect]
     Active Substance: FARICIMAB-SVOA
     Dosage: UNK
     Dates: start: 20240620
  5. VABYSMO [Suspect]
     Active Substance: FARICIMAB-SVOA
     Dosage: UNK
     Dates: start: 20240717
  6. VABYSMO [Suspect]
     Active Substance: FARICIMAB-SVOA
     Dosage: UNK
     Dates: start: 20240820
  7. LUCENTIS [Suspect]
     Active Substance: RANIBIZUMAB
     Indication: Age-related macular degeneration
     Dosage: 5 LUCENTIS INJECTION

REACTIONS (4)
  - Ocular hypertension [Unknown]
  - Uveitis [Unknown]
  - Vitritis [Unknown]
  - Off label use [Unknown]

NARRATIVE: CASE EVENT DATE: 20241104
